FAERS Safety Report 5564733-6 (Version None)
Quarter: 2007Q4

REPORT INFORMATION
  Report Type: 
  Country: None (occurrence: None)
  Receive Date: 20071214
  Receipt Date: 20071214
  Transmission Date: 20080405
  Serious: Yes (Life-Threatening, Hospitalization, Other)
  Sender: FDA-Public Use
  Company Number: None

PATIENT
  Age: 36 Year
  Sex: Female
  Weight: 86.1834 kg

DRUGS (2)
  1. YAZ [Suspect]
     Indication: ACNE
     Dosage: DAILY DOSE+ONE PILL DAILY  PO
     Route: 048
     Dates: start: 20071001, end: 20071024
  2. YAZ [Suspect]
     Indication: PREMENSTRUAL SYNDROME
     Dosage: DAILY DOSE+ONE PILL DAILY  PO
     Route: 048
     Dates: start: 20071001, end: 20071024

REACTIONS (14)
  - ANXIETY [None]
  - BLOOD PRESSURE INCREASED [None]
  - BREAST TENDERNESS [None]
  - BURNING SENSATION [None]
  - CHEST PAIN [None]
  - DIZZINESS [None]
  - DYSPNOEA [None]
  - HEADACHE [None]
  - MUSCLE SPASMS [None]
  - MUSCLE TWITCHING [None]
  - MYALGIA [None]
  - PAIN IN EXTREMITY [None]
  - PALPITATIONS [None]
  - PANIC ATTACK [None]
